FAERS Safety Report 17968592 (Version 1)
Quarter: 2020Q3

REPORT INFORMATION
  Report Type: Spontaneous
  Country: CO (occurrence: CO)
  Receive Date: 20200701
  Receipt Date: 20200701
  Transmission Date: 20201103
  Serious: Yes (Other)
  Sender: FDA-Public Use
  Company Number: NVSC2020CO182086

PATIENT
  Age: 38 Year
  Sex: Male
  Weight: 106 kg

DRUGS (7)
  1. PROGRAF [Concomitant]
     Active Substance: TACROLIMUS
     Indication: RENAL TRANSPLANT
     Dosage: 2 DF, QD (10 MG/ 2 CAPSULE)
     Route: 048
     Dates: start: 20200509, end: 20200522
  2. MYFORTIC [Suspect]
     Active Substance: MYCOPHENOLATE SODIUM
     Indication: RENAL TRANSPLANT
     Dosage: 360 MG, TID
     Route: 048
     Dates: start: 20080815
  3. SIROLIMUS. [Concomitant]
     Active Substance: SIROLIMUS
     Indication: PRODUCT USED FOR UNKNOWN INDICATION
     Dosage: UNK
     Route: 065
  4. PREDNISOLONE. [Concomitant]
     Active Substance: PREDNISOLONE
     Indication: PRODUCT USED FOR UNKNOWN INDICATION
     Dosage: 1 DF, QD (OTHER DAY 2 CAPSULES)
     Route: 048
  5. PROGRAF [Concomitant]
     Active Substance: TACROLIMUS
     Indication: RENAL TRANSPLANT
     Dosage: 4 DF, QD (4 MG/4 CAPSULE)
     Route: 048
     Dates: start: 20190526, end: 201908
  6. PROGRAF [Concomitant]
     Active Substance: TACROLIMUS
     Dosage: 3 DF, QD (3 MG/3 CAPSULE)
     Route: 048
     Dates: start: 201908, end: 20190914
  7. PROGRAF [Concomitant]
     Active Substance: TACROLIMUS
     Dosage: 2 DF (2 MG/2 CAPSULE)
     Route: 048
     Dates: start: 20190915

REACTIONS (2)
  - Inappropriate schedule of product administration [Unknown]
  - Lymphoedema [Unknown]

NARRATIVE: CASE EVENT DATE: 201902
